FAERS Safety Report 12013139 (Version 1)
Quarter: 2016Q1

REPORT INFORMATION
  Report Type: Spontaneous
  Country: US (occurrence: US)
  Receive Date: 20160205
  Receipt Date: 20160205
  Transmission Date: 20160526
  Serious: Yes (Other)
  Sender: FDA-Public Use
  Company Number: US-KADMON PHARMACEUTICALS, LLC-KAD201602-000399

PATIENT
  Sex: Female

DRUGS (2)
  1. INTERFERON [Suspect]
     Active Substance: INTERFERON
     Indication: HEPATITIS C
  2. RIBAVIRIN. [Suspect]
     Active Substance: RIBAVIRIN
     Indication: HEPATITIS C

REACTIONS (6)
  - Thyroidectomy [Unknown]
  - General physical health deterioration [Unknown]
  - Vitamin B12 deficiency [Unknown]
  - Bone pain [Unknown]
  - Emphysema [Unknown]
  - Cholecystectomy [Unknown]
